FAERS Safety Report 7592362-1 (Version None)
Quarter: 2011Q3

REPORT INFORMATION
  Report Type: 
  Country: None (occurrence: None)
  Receive Date: 20110706
  Receipt Date: 20110622
  Transmission Date: 20111222
  Serious: Yes (Hospitalization)
  Sender: FDA-Public Use
  Company Number: DE-JNJFOC-20110309553

PATIENT
  Sex: Female
  Weight: 54 kg

DRUGS (2)
  1. PREDNISONE [Concomitant]
     Indication: COLITIS ULCERATIVE
     Route: 048
     Dates: start: 20100401
  2. REMICADE [Suspect]
     Indication: COLITIS ULCERATIVE
     Dosage: 300-500 MG
     Route: 042
     Dates: start: 20100805

REACTIONS (1)
  - COLITIS ULCERATIVE [None]
